FAERS Safety Report 8456965 (Version 14)
Quarter: 2015Q2

REPORT INFORMATION
  Report Type: Report from Study
  Country: BR (occurrence: BR)
  Receive Date: 20120313
  Receipt Date: 20150501
  Transmission Date: 20150821
  Serious: Yes (Hospitalization, Disabling, Other)
  Sender: FDA-Public Use
  Company Number: BR-ROCHE-720062

PATIENT
  Age: 64 Year
  Sex: Female
  Weight: 64 kg

DRUGS (42)
  1. MABTHERA [Suspect]
     Active Substance: RITUXIMAB
     Dosage: ROUTE: ENDOVENOUS; DOSE: 100MG/10ML, FREQUENCY: 1000 MG, SECOND INFUSION WAS GIVEN ON 01 OCT 2012.
     Route: 042
     Dates: start: 20100601, end: 20110817
  2. AZITHROMYCIN [Suspect]
     Active Substance: AZITHROMYCIN ANHYDROUS
     Indication: NASOPHARYNGITIS
     Dosage: OTHER INDICATION: ASTHMA
     Route: 065
  3. LOSARTAN [Concomitant]
     Active Substance: LOSARTAN
     Route: 065
  4. PREGABALIN. [Concomitant]
     Active Substance: PREGABALIN
  5. DIUREX (BRAZIL) [Concomitant]
     Route: 065
  6. PREDNISONE. [Concomitant]
     Active Substance: PREDNISONE
     Indication: PAIN
     Route: 065
  7. PREDNISONE. [Concomitant]
     Active Substance: PREDNISONE
     Route: 065
  8. PENICILLAMINE [Concomitant]
     Active Substance: PENICILLAMINE
     Indication: RHEUMATOID ARTHRITIS
     Route: 065
  9. TYLENOL [Concomitant]
     Active Substance: ACETAMINOPHEN
     Route: 065
  10. NEOMYCIN [Concomitant]
     Active Substance: NEOMYCIN
     Indication: GASTROINTESTINAL DISORDER
     Route: 065
  11. LIPLESS [Concomitant]
     Active Substance: CIPROFIBRATE
     Route: 065
  12. DIUPRESS [Concomitant]
     Route: 065
  13. TRAMAL [Concomitant]
     Active Substance: TRAMADOL
     Indication: PAIN
     Route: 065
  14. LOSARTAN [Concomitant]
     Active Substance: LOSARTAN
     Indication: HYPERTENSION
     Dosage: DRUG: LOSARTANA
     Route: 065
  15. DIURISA [Concomitant]
     Active Substance: AMILORIDE HYDROCHLORIDE\FUROSEMIDE
     Indication: POLYURIA
     Route: 065
  16. BAMIFIX [Concomitant]
     Active Substance: BAMIFYLLINE HYDROCHLORIDE
  17. OMEPRAZOLE. [Concomitant]
     Active Substance: OMEPRAZOLE
     Indication: GASTRIC DISORDER
     Route: 065
  18. OMEPRAZOLE. [Concomitant]
     Active Substance: OMEPRAZOLE
     Route: 065
  19. DOMPERIDONE [Concomitant]
     Active Substance: DOMPERIDONE
     Dosage: WHEN NECESSARY
     Route: 065
  20. DOMPERIDONE [Concomitant]
     Active Substance: DOMPERIDONE
     Dosage: INDICATION: STOMACH CRISIS
     Route: 065
  21. AVAMYS [Concomitant]
     Active Substance: FLUTICASONE FUROATE
  22. NEOMYCIN [Concomitant]
     Active Substance: NEOMYCIN
  23. MABTHERA [Suspect]
     Active Substance: RITUXIMAB
     Indication: RHEUMATOID ARTHRITIS
     Route: 042
     Dates: start: 20081117, end: 20081117
  24. MABTHERA [Suspect]
     Active Substance: RITUXIMAB
     Route: 042
     Dates: start: 20081204, end: 20081204
  25. DICLOFENAC [Concomitant]
     Active Substance: DICLOFENAC
     Route: 065
  26. TYLENOL [Concomitant]
     Active Substance: ACETAMINOPHEN
     Indication: PAIN
     Route: 065
  27. AMLODIPINE [Concomitant]
     Active Substance: AMLODIPINE BESYLATE
     Route: 065
  28. DIUPRESS [Concomitant]
  29. OMEPRAZOLE. [Concomitant]
     Active Substance: OMEPRAZOLE
  30. LYRICA [Concomitant]
     Active Substance: PREGABALIN
     Route: 065
  31. PENTALAC [Concomitant]
     Active Substance: LACTULOSE
     Indication: GASTROINTESTINAL DISORDER
     Dosage: 3 OR 4 TIMES/DAY, OTHER INDICATION STOMACH CRISIS
     Route: 065
  32. PENTALAC [Concomitant]
     Active Substance: LACTULOSE
     Indication: HEPATIC ENCEPHALOPATHY
  33. HIGROTON [Concomitant]
     Active Substance: CHLORTHALIDONE
  34. ACECLOFENAC [Concomitant]
     Active Substance: ACECLOFENAC
     Route: 065
  35. ACETAMINOPHEN. [Concomitant]
     Active Substance: ACETAMINOPHEN
     Indication: PREMEDICATION
  36. LOSARTAN [Concomitant]
     Active Substance: LOSARTAN
  37. NEXIUM [Concomitant]
     Active Substance: ESOMEPRAZOLE MAGNESIUM
     Indication: GASTRITIS
  38. MABTHERA [Suspect]
     Active Substance: RITUXIMAB
     Dosage: LATEST INFUSION WAS GIVEN ON 14/AUG/2013
     Route: 042
  39. CYCLOBENZAPRINE [Concomitant]
     Active Substance: CYCLOBENZAPRINE
     Route: 065
  40. CELEBRA [Concomitant]
     Active Substance: CELECOXIB
     Indication: PAIN
     Route: 065
  41. CORTISONE [Concomitant]
     Active Substance: CORTISONE\HYDROCORTISONE
     Route: 065
  42. LACTULONA [Concomitant]

REACTIONS (70)
  - Limb injury [Recovering/Resolving]
  - Fall [Unknown]
  - Spinal disorder [Recovered/Resolved]
  - Swelling [Recovered/Resolved]
  - Erythema [Not Recovered/Not Resolved]
  - Blood cholesterol increased [Recovered/Resolved]
  - Palpitations [Unknown]
  - Bronchitis [Not Recovered/Not Resolved]
  - Arthropathy [Not Recovered/Not Resolved]
  - Exostosis [Not Recovered/Not Resolved]
  - Rheumatoid arthritis [Not Recovered/Not Resolved]
  - Asthenia [Not Recovered/Not Resolved]
  - Urinary tract infection [Not Recovered/Not Resolved]
  - Back disorder [Not Recovered/Not Resolved]
  - Nasopharyngitis [Recovered/Resolved]
  - Muscle rigidity [Not Recovered/Not Resolved]
  - Back pain [Unknown]
  - Arthralgia [Recovered/Resolved]
  - Osteoarthritis [Unknown]
  - Sciatica [Not Recovered/Not Resolved]
  - Arthralgia [Not Recovered/Not Resolved]
  - Vascular rupture [Recovering/Resolving]
  - Vitamin D decreased [Unknown]
  - Coccydynia [Not Recovered/Not Resolved]
  - Hypersensitivity [Recovering/Resolving]
  - Hyperaesthesia [Unknown]
  - Constipation [Not Recovered/Not Resolved]
  - Decreased immune responsiveness [Recovered/Resolved]
  - Pain [Recovering/Resolving]
  - Pneumonia [Recovered/Resolved]
  - Blood pressure decreased [Not Recovered/Not Resolved]
  - Bursitis [Not Recovered/Not Resolved]
  - Arthropathy [Recovered/Resolved]
  - Asthma [Recovered/Resolved]
  - Headache [Recovered/Resolved]
  - Hypertension [Not Recovered/Not Resolved]
  - Anaemia [Recovering/Resolving]
  - Protein total decreased [Not Recovered/Not Resolved]
  - Pelvic pain [Unknown]
  - Influenza [Recovered/Resolved]
  - Platelet count decreased [Not Recovered/Not Resolved]
  - Encephalopathy [Unknown]
  - Nasopharyngitis [Not Recovered/Not Resolved]
  - Rash [Not Recovered/Not Resolved]
  - Weight decreased [Unknown]
  - Bacterial infection [Unknown]
  - Hepatitis C [Not Recovered/Not Resolved]
  - Nausea [Recovered/Resolved]
  - Hypotension [Recovered/Resolved]
  - Chills [Recovered/Resolved]
  - Mass [Not Recovered/Not Resolved]
  - Memory impairment [Not Recovered/Not Resolved]
  - Immunodeficiency [Not Recovered/Not Resolved]
  - Bronchitis [Recovered/Resolved]
  - Abdominal pain upper [Unknown]
  - Fibromyalgia [Not Recovered/Not Resolved]
  - Varicose vein [Recovering/Resolving]
  - Body height decreased [Not Recovered/Not Resolved]
  - Hepatic encephalopathy [Not Recovered/Not Resolved]
  - Bronchitis [Recovering/Resolving]
  - Asthmatic crisis [Not Recovered/Not Resolved]
  - Muscular weakness [Not Recovered/Not Resolved]
  - Peripheral swelling [Recovering/Resolving]
  - Joint prosthesis user [Unknown]
  - Spinal fracture [Unknown]
  - Arthropathy [Unknown]
  - Dizziness [Recovered/Resolved]
  - Chronic gastritis [Not Recovered/Not Resolved]
  - Insomnia [Not Recovered/Not Resolved]
  - Drug ineffective [Unknown]

NARRATIVE: CASE EVENT DATE: 20081117
